FAERS Safety Report 8438779-4 (Version None)
Quarter: 2012Q2

REPORT INFORMATION
  Report Type: 
  Country: None (occurrence: None)
  Receive Date: 20120608
  Receipt Date: 20120525
  Transmission Date: 20120825
  Serious: Yes (Other)
  Sender: FDA-Public Use
  Company Number: 2012MA006618

PATIENT
  Age: 23 Year
  Sex: Female

DRUGS (1)
  1. CLOTRIMAZOLE [Suspect]
     Indication: FUNGAL INFECTION
     Dosage: 1 PCT,HS, VAG
     Route: 067
     Dates: start: 20120521, end: 20120524

REACTIONS (1)
  - VAGINAL HAEMORRHAGE [None]
